FAERS Safety Report 8427329-4 (Version None)
Quarter: 2012Q2

REPORT INFORMATION
  Report Type: 
  Country: None (occurrence: None)
  Receive Date: 20120611
  Receipt Date: 20120601
  Transmission Date: 20120825
  Serious: Yes (Hospitalization)
  Sender: FDA-Public Use
  Company Number: US-ABBOTT-12P-163-0941575-00

PATIENT
  Sex: Male
  Weight: 104.42 kg

DRUGS (1)
  1. HUMIRA [Suspect]
     Indication: RHEUMATOID ARTHRITIS
     Route: 058
     Dates: start: 20070101

REACTIONS (11)
  - BRONCHITIS [None]
  - PHARYNGITIS STREPTOCOCCAL [None]
  - RHINORRHOEA [None]
  - WHITE BLOOD CELL COUNT INCREASED [None]
  - UPPER EXTREMITY MASS [None]
  - HYPERHIDROSIS [None]
  - RHEUMATOID FACTOR INCREASED [None]
  - ASTHENIA [None]
  - LOWER EXTREMITY MASS [None]
  - ARTHRALGIA [None]
  - RHEUMATOID ARTHRITIS [None]
